FAERS Safety Report 7596657-7 (Version None)
Quarter: 2011Q3

REPORT INFORMATION
  Report Type: 
  Country: None (occurrence: None)
  Receive Date: 20110708
  Receipt Date: 20110630
  Transmission Date: 20111222
  Serious: Yes (Hospitalization)
  Sender: FDA-Public Use
  Company Number: US-JNJFOC-20110409564

PATIENT
  Sex: Female

DRUGS (2)
  1. NUCYNTA [Suspect]
     Indication: PROCEDURAL PAIN
     Route: 048
     Dates: start: 20110408
  2. LYRICA [Concomitant]
     Indication: NEUROPATHY PERIPHERAL
     Route: 065

REACTIONS (2)
  - ASTHENIA [None]
  - ESSENTIAL TREMOR [None]
